FAERS Safety Report 14009127 (Version 2)
Quarter: 2017Q4

REPORT INFORMATION
  Report Type: Spontaneous
  Country: US (occurrence: US)
  Receive Date: 20170925
  Receipt Date: 20171013
  Transmission Date: 20180321
  Serious: Yes (Hospitalization)
  Sender: FDA-Public Use
  Company Number: US-JNJFOC-20170923008

PATIENT
  Age: 32 Year
  Sex: Female
  Weight: 108.86 kg

DRUGS (4)
  1. CHOLESTYRAMINE. [Concomitant]
     Active Substance: CHOLESTYRAMINE
     Route: 065
  2. REMICADE [Suspect]
     Active Substance: INFLIXIMAB
     Indication: CROHN^S DISEASE
     Route: 042
     Dates: start: 20151123, end: 20161016
  3. STELARA [Suspect]
     Active Substance: USTEKINUMAB
     Indication: CROHN^S DISEASE
     Route: 058
     Dates: start: 20161110, end: 2016
  4. PHENERGAN [Concomitant]
     Active Substance: PROMETHAZINE HYDROCHLORIDE
     Route: 065

REACTIONS (3)
  - Intestinal resection [Recovered/Resolved]
  - Drug level below therapeutic [Unknown]
  - Drug effect decreased [Unknown]

NARRATIVE: CASE EVENT DATE: 2016
